FAERS Safety Report 5218311-9 (Version None)
Quarter: 2007Q1

REPORT INFORMATION
  Report Type: 
  Country: None (occurrence: None)
  Receive Date: 20070124
  Receipt Date: 20070102
  Transmission Date: 20070707
  Serious: Yes (Death, Other)
  Sender: FDA-Public Use
  Company Number: US-PFIZER INC-2007001919

PATIENT
  Sex: Male
  Weight: 86.2 kg

DRUGS (1)
  1. BEXTRA [Suspect]
     Indication: MUSCULOSKELETAL PAIN
     Dates: start: 20030501, end: 20040301

REACTIONS (2)
  - CEREBROVASCULAR ACCIDENT [None]
  - MYOCARDIAL INFARCTION [None]
